FAERS Safety Report 20847199 (Version 1)
Quarter: 2022Q2

REPORT INFORMATION
  Report Type: Spontaneous
  Country: PK (occurrence: PK)
  Receive Date: 20220519
  Receipt Date: 20220519
  Transmission Date: 20220721
  Serious: Yes (Disabling)
  Sender: FDA-Public Use
  Company Number: PK-PFIZER INC-202101023993

PATIENT
  Age: 27 Year
  Sex: Female

DRUGS (5)
  1. ENBREL [Suspect]
     Active Substance: ETANERCEPT
     Indication: Peripheral spondyloarthritis
     Dosage: 50 MG, EVERY TWO WEEKS
     Route: 058
  2. ENBREL [Suspect]
     Active Substance: ETANERCEPT
     Dosage: 50 MG, WEEKLY
     Route: 058
     Dates: start: 20210809
  3. FOLIC ACID [Concomitant]
     Active Substance: FOLIC ACID
     Dosage: 5 MG, 1X/DAY
  4. XOBIX [Concomitant]
     Dosage: 1 DF, AS NEEDED
  5. Sunny d [Concomitant]
     Dosage: 1 DF, MONTHLY

REACTIONS (4)
  - Joint swelling [Unknown]
  - Arthralgia [Unknown]
  - Off label use [Unknown]
  - Infection [Unknown]
